FAERS Safety Report 18464253 (Version 3)
Quarter: 2024Q1

REPORT INFORMATION
  Report Type: Spontaneous
  Country: JP (occurrence: JP)
  Receive Date: 20201104
  Receipt Date: 20240119
  Transmission Date: 20240410
  Serious: Yes (Other)
  Sender: FDA-Public Use
  Company Number: JP-JAZZ-2020-JP-011821

PATIENT
  Age: 24 Year
  Sex: Male
  Weight: 58.85 kg

DRUGS (1)
  1. DEFITELIO [Suspect]
     Active Substance: DEFIBROTIDE SODIUM
     Indication: Venoocclusive liver disease
     Dosage: 25 MILLIGRAM/KILOGRAM, QD
     Route: 042
     Dates: start: 20200807, end: 20200916

REACTIONS (2)
  - Cystitis haemorrhagic [Unknown]
  - Blood beta-D-glucan increased [Recovered/Resolved]

NARRATIVE: CASE EVENT DATE: 20200817
